FAERS Safety Report 8005716-6 (Version None)
Quarter: 2011Q4

REPORT INFORMATION
  Report Type: 
  Country: None (occurrence: None)
  Receive Date: 20111223
  Receipt Date: 20111220
  Transmission Date: 20120403
  Serious: Yes (Death, Hospitalization)
  Sender: FDA-Public Use
  Company Number: PHHY2011FR111079

PATIENT
  Sex: Female

DRUGS (1)
  1. PACLITAXEL [Suspect]
     Indication: UTERINE NEOPLASM
     Dosage: 270 MG, UNK
     Route: 041
     Dates: start: 20111026, end: 20111026

REACTIONS (1)
  - ARTERIOSPASM CORONARY [None]
